FAERS Safety Report 13504829 (Version 1)
Quarter: 2017Q2

REPORT INFORMATION
  Report Type: Spontaneous
  Country: US (occurrence: US)
  Receive Date: 20170502
  Receipt Date: 20170502
  Transmission Date: 20170830
  Serious: No
  Sender: FDA-Public Use
  Company Number: US-IMPAX LABORATORIES, INC-2017-IPXL-00487

PATIENT
  Sex: Male
  Weight: 85 kg

DRUGS (12)
  1. RYTARY [Suspect]
     Active Substance: CARBIDOPA\LEVODOPA
     Dosage: 61.25/245MG ONE CAPSULES EVERY THREE HOUR FOUR TIMES A DAY
     Route: 048
     Dates: start: 201702
  2. GRAPE SEED EXTRACT [Concomitant]
     Active Substance: GRAPE SEED EXTRACT
     Indication: SUPPLEMENTATION THERAPY
     Dosage: UNK
     Route: 065
  3. ADVIL [Concomitant]
     Active Substance: IBUPROFEN
     Indication: MUSCULOSKELETAL PAIN
     Dosage: UNK
     Route: 065
  4. SINEMET [Concomitant]
     Active Substance: CARBIDOPA\LEVODOPA
     Indication: PARKINSON^S DISEASE
     Dosage: 25/100 MG, 1 PILL EVERY THREE HOUR, 4 TIMES DAILY
     Route: 048
     Dates: start: 201702
  5. RYTARY [Suspect]
     Active Substance: CARBIDOPA\LEVODOPA
     Indication: PARKINSON^S DISEASE
     Dosage: 48.75/195 MG, ONE CAPSULE FOUR TIMES A DAY
     Route: 048
     Dates: start: 201701
  6. RYTARY [Suspect]
     Active Substance: CARBIDOPA\LEVODOPA
     Dosage: 48.75/195 MG TWO CAPSULES FOUR TIMES A DAY
     Route: 048
  7. MELATONIN [Concomitant]
     Active Substance: MELATONIN
     Indication: PRODUCT USED FOR UNKNOWN INDICATION
     Dosage: UNK
     Route: 065
  8. RYTARY [Suspect]
     Active Substance: CARBIDOPA\LEVODOPA
     Dosage: 48.75/195 MG THREE CAPSULES FOUR TIMES A DAY
     Route: 048
  9. RYTARY [Suspect]
     Active Substance: CARBIDOPA\LEVODOPA
     Dosage: 61.25/245MG TWO CAPSULES FOUR TIMES A DAY
     Route: 048
  10. VITAMIN D3 [Concomitant]
     Active Substance: CHOLECALCIFEROL
     Indication: SUPPLEMENTATION THERAPY
     Dosage: UNK
     Route: 065
  11. RYTARY [Suspect]
     Active Substance: CARBIDOPA\LEVODOPA
     Dosage: 48.75/195 MG, 3 CAPSULE 4 TIMES A DAY WITH 23.75/95MG FOUR TIMES A DAY
     Route: 048
  12. COMTAN [Concomitant]
     Active Substance: ENTACAPONE
     Indication: PARKINSON^S DISEASE
     Dosage: 200 MG, 1 CAPSULE EVERY 3 HOUR, 4 TIMES DAILY
     Route: 048
     Dates: start: 201702

REACTIONS (3)
  - Drug ineffective [Recovering/Resolving]
  - Blood pressure increased [Unknown]
  - Sleep disorder [Not Recovered/Not Resolved]
